FAERS Safety Report 23169500 (Version 2)
Quarter: 2023Q4

REPORT INFORMATION
  Report Type: Spontaneous
  Country: PL (occurrence: PL)
  Receive Date: 20231110
  Receipt Date: 20231215
  Transmission Date: 20240110
  Serious: Yes (Hospitalization, Other)
  Sender: FDA-Public Use
  Company Number: PL-Orion Corporation ORION PHARMA-SERT2023-0016

PATIENT
  Age: 29 Year
  Sex: Male

DRUGS (8)
  1. SERTRALINE [Interacting]
     Active Substance: SERTRALINE HYDROCHLORIDE
     Indication: Depression
     Dosage: 100 MILLIGRAM, ONCE A DAY
     Route: 065
  2. ACETAMINOPHEN [Interacting]
     Active Substance: ACETAMINOPHEN
     Indication: Headache
     Dosage: 1000 MILLIGRAM 4 X 1000 MG)
     Route: 065
  3. SEMAGLUTIDE [Interacting]
     Active Substance: SEMAGLUTIDE
     Indication: Obesity
     Dosage: 0.25 MILLIGRAM, EVERY WEEK (FIRST 2 WEEKS)
     Route: 065
  4. SEMAGLUTIDE [Interacting]
     Active Substance: SEMAGLUTIDE
     Dosage: 1 MILLIGRAM
     Route: 065
  5. BUPROPION HYDROCHLORIDE\NALTREXONE HYDROCHLORIDE [Interacting]
     Active Substance: BUPROPION HYDROCHLORIDE\NALTREXONE HYDROCHLORIDE
     Indication: Obesity
     Dosage: 1 DOSAGE FORM 90MG/8MG; 1 TABLET 2 TIMES A DAY FOR 2 WEEKS)
     Route: 065
  6. BUPROPION HYDROCHLORIDE\NALTREXONE HYDROCHLORIDE [Interacting]
     Active Substance: BUPROPION HYDROCHLORIDE\NALTREXONE HYDROCHLORIDE
     Dosage: 2 DOSAGE FORM
     Route: 065
  7. OMEPRAZOLE [Interacting]
     Active Substance: OMEPRAZOLE
     Indication: Oesophageal pain
     Dosage: 40 MILLIGRAM, ONCE A DAY
     Route: 065
  8. OMEPRAZOLE [Interacting]
     Active Substance: OMEPRAZOLE
     Indication: Eructation

REACTIONS (7)
  - Pancreatitis [Recovered/Resolved]
  - Drug interaction [Unknown]
  - Product administration error [Unknown]
  - Contraindicated product administered [Unknown]
  - Headache [Recovered/Resolved]
  - Oesophageal pain [Recovered/Resolved]
  - Eructation [Recovered/Resolved]
